FAERS Safety Report 13860022 (Version 1)
Quarter: 2017Q3

REPORT INFORMATION
  Report Type: Report from Study
  Country: PE (occurrence: PE)
  Receive Date: 20170811
  Receipt Date: 20170811
  Transmission Date: 20171127
  Serious: Yes (Other)
  Sender: FDA-Public Use
  Company Number: PE-SA-2017SA137957

PATIENT
  Age: 69 Year
  Sex: Female

DRUGS (1)
  1. APROVEL [Suspect]
     Active Substance: IRBESARTAN
     Indication: ESSENTIAL HYPERTENSION
     Route: 048

REACTIONS (2)
  - Pterygium [Unknown]
  - Glaucoma [Unknown]

NARRATIVE: CASE EVENT DATE: 2016
